FAERS Safety Report 9221864 (Version 4)
Quarter: 2014Q3

REPORT INFORMATION
  Report Type: Report from Study
  Country: US (occurrence: US)
  Receive Date: 20130410
  Receipt Date: 20140705
  Transmission Date: 20150326
  Serious: Yes (Hospitalization, Other)
  Sender: FDA-Public Use
  Company Number: US-ALEXION PHARMACEUTICALS INC.-A201300806

PATIENT

DRUGS (2)
  1. SOLIRIS [Suspect]
     Active Substance: ECULIZUMAB
     Indication: HAEMOLYTIC URAEMIC SYNDROME
     Dosage: 1200 UNK, UNK
     Route: 042
  2. MENINGOCOCCAL POLYSACCHARIDE VACCINE A NOS [Concomitant]
     Active Substance: MENINGOCOCCAL POLYSACCHARIDE VACCINE A\NEISSERIA MENINGITIDIS GROUP A CAPSULAR POLYSACCHARIDE ANTIGEN
     Indication: IMMUNISATION
     Dosage: UNK
     Dates: start: 20130321, end: 20130321

REACTIONS (12)
  - VIIth nerve paralysis [Recovering/Resolving]
  - Oedema [Unknown]
  - Systemic lupus erythematosus [Unknown]
  - Thrombotic microangiopathy [Unknown]
  - Enterococcal infection [Unknown]
  - Unevaluable event [Unknown]
  - Renal disorder [Recovering/Resolving]
  - Fluid retention [Unknown]
  - Herpes zoster [Recovering/Resolving]
  - Staphylococcal bacteraemia [Unknown]
  - Heart rate irregular [Unknown]
  - Diarrhoea [Unknown]

NARRATIVE: CASE EVENT DATE: 201301
